FAERS Safety Report 9606782 (Version 1)
Quarter: 2013Q4

REPORT INFORMATION
  Report Type: Spontaneous
  Country: US (occurrence: US)
  Receive Date: 20131008
  Receipt Date: 20131008
  Transmission Date: 20140711
  Serious: Yes (Hospitalization)
  Sender: FDA-Public Use
  Company Number: US-AMGEN-USASP2013063952

PATIENT
  Age: 79 Year
  Sex: Female

DRUGS (4)
  1. PROLIA [Suspect]
     Indication: OSTEOPOROSIS
     Route: 065
  2. VITAMIN B12                        /00056201/ [Concomitant]
  3. AZOR                               /00595201/ [Concomitant]
  4. CALCIUM [Concomitant]
     Route: 065

REACTIONS (7)
  - Pneumonia [Unknown]
  - Cystitis [Unknown]
  - Back pain [Unknown]
  - Mobility decreased [Unknown]
  - Pain [Unknown]
  - Feeling abnormal [Unknown]
  - Pain in extremity [Unknown]
